FAERS Safety Report 8819746 (Version 3)
Quarter: 2015Q3

REPORT INFORMATION
  Report Type: Report from Study
  Country: US (occurrence: US)
  Receive Date: 20121001
  Receipt Date: 20150810
  Transmission Date: 20151125
  Serious: Yes (Other)
  Sender: FDA-Public Use
  Company Number: US-ROCHE-1129417

PATIENT
  Sex: Female

DRUGS (9)
  1. NAVELBINE [Concomitant]
     Active Substance: VINORELBINE TARTRATE
     Route: 042
  2. BENADRYL [Concomitant]
     Active Substance: DIPHENHYDRAMINE HYDROCHLORIDE
     Route: 042
  3. SILVADENE [Concomitant]
     Active Substance: SILVER SULFADIAZINE
  4. HERCEPTIN [Suspect]
     Active Substance: TRASTUZUMAB
     Indication: BREAST CANCER FEMALE
     Route: 042
     Dates: start: 20000830
  5. HERCEPTIN [Suspect]
     Active Substance: TRASTUZUMAB
     Dosage: WEEK 5
     Route: 042
  6. MAGNESIUM SULPHATE [Concomitant]
     Active Substance: MAGNESIUM SULFATE
     Route: 065
  7. HERCEPTIN [Suspect]
     Active Substance: TRASTUZUMAB
     Dosage: LOADING DOSE 4 MG/KG, MAINTAINANCE DOSE 2MG/KG
     Route: 042
     Dates: start: 20000822
  8. TYLENOL [Concomitant]
     Active Substance: ACETAMINOPHEN
     Route: 048
  9. SOLU-CORTEF INJECTABLE [Concomitant]
     Route: 065

REACTIONS (14)
  - Nausea [Unknown]
  - Contusion [Unknown]
  - Vomiting [Unknown]
  - Fatigue [Unknown]
  - Emotional disorder [Unknown]
  - Alopecia [Unknown]
  - Malaise [Unknown]
  - Decreased appetite [Unknown]
  - Haemorrhage [Unknown]
  - Pain in extremity [Unknown]
  - Metastasis [Unknown]
  - Wound [Unknown]
  - Arthralgia [Unknown]
  - Asthenia [Unknown]
